FAERS Safety Report 6567513-8 (Version None)
Quarter: 2010Q1

REPORT INFORMATION
  Report Type: 
  Country: None (occurrence: None)
  Receive Date: 20100202
  Receipt Date: 20100128
  Transmission Date: 20100710
  Serious: No
  Sender: FDA-Public Use
  Company Number: US-JNJFOC-20100200110

PATIENT
  Sex: Female
  Weight: 65.55 kg

DRUGS (10)
  1. INVEGA SUSTENNA [Suspect]
     Indication: SCHIZOPHRENIA
     Route: 030
  2. INVEGA SUSTENNA [Suspect]
     Route: 030
  3. LORATADINE [Concomitant]
     Indication: DRUG USE FOR UNKNOWN INDICATION
  4. ATENOLOL [Concomitant]
     Indication: DRUG USE FOR UNKNOWN INDICATION
  5. ZETIA [Concomitant]
     Indication: DRUG USE FOR UNKNOWN INDICATION
  6. WELLBUTRIN [Concomitant]
     Indication: DRUG USE FOR UNKNOWN INDICATION
  7. NAPROSYN [Concomitant]
     Indication: DRUG USE FOR UNKNOWN INDICATION
  8. LOVASTATIN [Concomitant]
     Indication: DRUG USE FOR UNKNOWN INDICATION
  9. IMODIUM [Concomitant]
     Indication: DRUG USE FOR UNKNOWN INDICATION
  10. VICODIN [Concomitant]
     Indication: DRUG USE FOR UNKNOWN INDICATION

REACTIONS (6)
  - DEREALISATION [None]
  - DISTURBANCE IN SOCIAL BEHAVIOUR [None]
  - DYSKINESIA [None]
  - FEELING ABNORMAL [None]
  - GAIT DISTURBANCE [None]
  - SLUGGISHNESS [None]
